FAERS Safety Report 25459168 (Version 1)
Quarter: 2025Q2

REPORT INFORMATION
  Report Type: Spontaneous
  Country: US (occurrence: US)
  Receive Date: 20250620
  Receipt Date: 20250620
  Transmission Date: 20250717
  Serious: Yes (Other)
  Sender: AUROBINDO
  Company Number: US-MLMSERVICE-20220322-3444062-2

PATIENT
  Age: 19 Year
  Sex: Female

DRUGS (2)
  1. SERTRALINE [Suspect]
     Active Substance: SERTRALINE HYDROCHLORIDE
     Indication: Anxiety
     Route: 065
  2. ORTHO MICRONOR [Concomitant]
     Active Substance: NORETHINDRONE
     Indication: Contraception
     Dosage: 0.35 MILLIGRAM, ONCE A DAY
     Route: 048

REACTIONS (4)
  - Oral pain [Unknown]
  - Mouth swelling [Unknown]
  - Neck pain [Unknown]
  - Swelling [Unknown]
